FAERS Safety Report 14967243 (Version 1)
Quarter: 2018Q2

REPORT INFORMATION
  Report Type: Spontaneous
  Country: GB (occurrence: GB)
  Receive Date: 20180604
  Receipt Date: 20180604
  Transmission Date: 20180711
  Serious: No
  Sender: FDA-Public Use
  Company Number: GB-CHEPLA-C20180097

PATIENT
  Age: 53 Year
  Sex: Male

DRUGS (3)
  1. DAUNORUBICIN [Concomitant]
     Active Substance: DAUNORUBICIN
  2. ALL-TRANS RETINOIC ACID [Suspect]
     Active Substance: TRETINOIN
     Indication: ACUTE PROMYELOCYTIC LEUKAEMIA
  3. CYTARABINE. [Concomitant]
     Active Substance: CYTARABINE

REACTIONS (2)
  - Drug ineffective [Unknown]
  - Coagulopathy [Unknown]
